FAERS Safety Report 4355030-5 (Version None)
Quarter: 2004Q2

REPORT INFORMATION
  Report Type: 
  Country: None (occurrence: None)
  Receive Date: 20040504
  Receipt Date: 20040421
  Transmission Date: 20050107
  Serious: Yes (Hospitalization)
  Sender: FDA-Public Use
  Company Number: 03P-167-0244905-00

PATIENT
  Age: 67 Year
  Sex: Male
  Weight: 82.7 kg

DRUGS (11)
  1. MERIDIA [Suspect]
     Indication: OBESITY
     Dosage: 10 MG, 1 IN 1 D, PER ORAL
     Route: 048
     Dates: start: 20031122
  2. RAMIPRIL [Concomitant]
  3. INSULIN ASPART [Concomitant]
  4. BENDROFLUMETHIAZIDE [Concomitant]
  5. PRAZOSIN HCL [Concomitant]
  6. ACETAMINOPHEN W/ CODEINE [Concomitant]
  7. ACETAMINOPHEN [Concomitant]
  8. ISOPHANE INSULIN [Concomitant]
  9. FENOFIBRATE [Concomitant]
  10. LOPERAMIDE HCL [Concomitant]
  11. ASPIRIN [Concomitant]

REACTIONS (2)
  - BENIGN PROSTATIC HYPERPLASIA [None]
  - PROSTATITIS [None]
